FAERS Safety Report 6688241-4 (Version None)
Quarter: 2010Q2

REPORT INFORMATION
  Report Type: 
  Country: None (occurrence: None)
  Receive Date: 20100420
  Receipt Date: 20100413
  Transmission Date: 20101027
  Serious: Yes (Other)
  Sender: FDA-Public Use
  Company Number: US-SANOFI-AVENTIS-2010SA017019

PATIENT
  Age: 74 Year
  Sex: Female
  Weight: 63.95 kg

DRUGS (10)
  1. MULTAQ [Suspect]
     Indication: ATRIAL FIBRILLATION
     Route: 048
     Dates: start: 20100309
  2. COUMADIN [Suspect]
     Indication: ATRIAL FIBRILLATION
     Dosage: 2.5 MG 5 TIMES WEEKLY
     Route: 048
     Dates: start: 20100323
  3. COUMADIN [Suspect]
     Route: 048
     Dates: start: 19980101, end: 20100323
  4. ZOCOR [Concomitant]
     Route: 065
  5. ZOCOR [Concomitant]
     Route: 065
  6. PRILOSEC [Concomitant]
     Route: 065
  7. SYNTHROID [Concomitant]
     Dosage: 0.125 MG SIX TIMES WEEKLY
     Route: 065
  8. ZETIA [Concomitant]
     Route: 065
  9. TOPROL-XL [Concomitant]
     Route: 065
  10. VITAMIN D [Concomitant]
     Route: 065

REACTIONS (1)
  - INTERNATIONAL NORMALISED RATIO INCREASED [None]
